FAERS Safety Report 25450669 (Version 1)
Quarter: 2025Q2

REPORT INFORMATION
  Report Type: Spontaneous
  Country: AU (occurrence: AU)
  Receive Date: 20250618
  Receipt Date: 20250618
  Transmission Date: 20250717
  Serious: Yes (Other)
  Sender: SANDOZ
  Company Number: AU-JNJFOC-20250523302

PATIENT

DRUGS (7)
  1. ADALIMUMAB [Suspect]
     Active Substance: ADALIMUMAB
     Indication: Inflammatory bowel disease
     Route: 064
  2. REMICADE [Suspect]
     Active Substance: INFLIXIMAB
     Indication: Product used for unknown indication
     Route: 064
  3. REMICADE [Suspect]
     Active Substance: INFLIXIMAB
     Route: 064
  4. USTEKINUMAB [Suspect]
     Active Substance: USTEKINUMAB
     Indication: Product used for unknown indication
     Dosage: INTERVAL: 4 WEEK
     Route: 064
  5. USTEKINUMAB [Suspect]
     Active Substance: USTEKINUMAB
     Dosage: INTERVAL: 8 WEEK
     Route: 064
  6. VEDOLIZUMAB [Suspect]
     Active Substance: VEDOLIZUMAB
     Indication: Inflammatory bowel disease
     Route: 064
  7. BUDESONIDE [Concomitant]
     Active Substance: BUDESONIDE
     Indication: Inflammatory bowel disease
     Route: 065

REACTIONS (2)
  - Lower respiratory tract infection [Unknown]
  - Foetal exposure during pregnancy [Recovered/Resolved]
